FAERS Safety Report 11878615 (Version 1)
Quarter: 2015Q4

REPORT INFORMATION
  Report Type: Report from Study
  Country: US (occurrence: US)
  Receive Date: 20151230
  Receipt Date: 20151230
  Transmission Date: 20160305
  Serious: Yes (Death)
  Sender: FDA-Public Use
  Company Number: PHEH2015US027283

PATIENT
  Age: 85 Year
  Sex: Female

DRUGS (2)
  1. GLEEVEC [Suspect]
     Active Substance: IMATINIB MESYLATE
     Dosage: 400 MG, QD
     Route: 048
  2. GLEEVEC [Suspect]
     Active Substance: IMATINIB MESYLATE
     Indication: HEPATIC NEOPLASM
     Dosage: 400 MG, QD
     Route: 048
     Dates: start: 2004

REACTIONS (2)
  - Product use issue [Unknown]
  - Death [Fatal]

NARRATIVE: CASE EVENT DATE: 20151221
